FAERS Safety Report 18632919 (Version 1)
Quarter: 2020Q4

REPORT INFORMATION
  Report Type: Spontaneous
  Country: IT (occurrence: IT)
  Receive Date: 20201218
  Receipt Date: 20201218
  Transmission Date: 20210114
  Serious: Yes (Death)
  Sender: FDA-Public Use
  Company Number: NVSC2020IT336362

PATIENT
  Age: 66 Year
  Sex: Male
  Weight: 86 kg

DRUGS (1)
  1. LINEZOLID. [Suspect]
     Active Substance: LINEZOLID
     Indication: SARS-COV-2 SEPSIS
     Dosage: 1200 MG, QD
     Route: 042
     Dates: start: 20201125, end: 20201130

REACTIONS (1)
  - Rash [Fatal]

NARRATIVE: CASE EVENT DATE: 20201128
